FAERS Safety Report 4586394-5 (Version None)
Quarter: 2005Q1

REPORT INFORMATION
  Report Type: 
  Country: None (occurrence: None)
  Receive Date: 20050125
  Receipt Date: 20040909
  Transmission Date: 20050727
  Serious: No
  Sender: FDA-Public Use
  Company Number: USA040977859

PATIENT
  Age: 75 Year
  Sex: Female

DRUGS (4)
  1. FORTEO [Suspect]
     Indication: OSTEOPENIA
     Dates: start: 20040909
  2. EVISTA [Suspect]
     Indication: BREAST CANCER
     Dates: start: 20020101
  3. EVISTA [Suspect]
     Indication: NEOPLASM PROPHYLAXIS
     Dates: start: 20020101
  4. CELEBREX [Concomitant]

REACTIONS (6)
  - FEELING ABNORMAL [None]
  - HEADACHE [None]
  - HEART RATE INCREASED [None]
  - NAUSEA [None]
  - NERVOUSNESS [None]
  - THINKING ABNORMAL [None]
